FAERS Safety Report 14797116 (Version 1)
Quarter: 2018Q2

REPORT INFORMATION
  Report Type: Spontaneous
  Country: US (occurrence: US)
  Receive Date: 20180423
  Receipt Date: 20180423
  Transmission Date: 20180711
  Serious: Yes (Life-Threatening, Hospitalization, Other)
  Sender: FDA-Public Use
  Company Number: US-SA-2018SA089320

PATIENT
  Age: 48 Year
  Sex: Female
  Weight: 101 kg

DRUGS (14)
  1. OXYCODONE [Concomitant]
     Active Substance: OXYCODONE
     Route: 065
     Dates: start: 20170526
  2. SENNA [Concomitant]
     Active Substance: SENNA LEAF\SENNOSIDES\SENNOSIDES A AND B
     Route: 065
     Dates: start: 20150327
  3. AZACITIDINE. [Suspect]
     Active Substance: AZACITIDINE
     Route: 058
     Dates: start: 20170925, end: 20171128
  4. PEMBROLIZUMAB. [Suspect]
     Active Substance: PEMBROLIZUMAB
     Indication: COLON CANCER METASTATIC
     Dosage: FORM: INTRAVENOUS
     Dates: start: 20171002, end: 20171128
  5. INCB024360 [Suspect]
     Active Substance: EPACADOSTAT
     Indication: COLON CANCER METASTATIC
     Route: 048
     Dates: start: 20171002, end: 20171128
  6. OMEPRAZOLE. [Concomitant]
     Active Substance: OMEPRAZOLE
     Route: 065
     Dates: start: 20130801
  7. FLOVENT [Concomitant]
     Active Substance: FLUTICASONE PROPIONATE
     Dosage: FORM: INHALER
     Route: 065
     Dates: start: 20150507
  8. LOVENOX [Suspect]
     Active Substance: ENOXAPARIN SODIUM
     Indication: PROPHYLAXIS
     Route: 058
     Dates: start: 20170615, end: 20171210
  9. ONDANSETRON [Concomitant]
     Active Substance: ONDANSETRON
     Route: 065
     Dates: start: 20170115
  10. LEVOTHYROXINE. [Concomitant]
     Active Substance: LEVOTHYROXINE
     Route: 065
     Dates: start: 20160516
  11. LISINOPRIL. [Concomitant]
     Active Substance: LISINOPRIL
     Route: 065
     Dates: start: 20131126
  12. ALBUTEROL. [Concomitant]
     Active Substance: ALBUTEROL
     Dosage: FORM: INHALER
     Route: 065
     Dates: start: 20100820
  13. COMPAZINE [Concomitant]
     Active Substance: PROCHLORPERAZINE MALEATE
     Route: 065
     Dates: start: 20170615
  14. LORAZEPAM. [Concomitant]
     Active Substance: LORAZEPAM
     Route: 065
     Dates: start: 20160908

REACTIONS (1)
  - Intra-abdominal haemorrhage [Recovered/Resolved]

NARRATIVE: CASE EVENT DATE: 20171218
